FAERS Safety Report 7790672-6 (Version None)
Quarter: 2011Q3

REPORT INFORMATION
  Report Type: 
  Country: None (occurrence: None)
  Receive Date: 20110930
  Receipt Date: 20110920
  Transmission Date: 20111222
  Serious: Yes (Hospitalization, Other)
  Sender: FDA-Public Use
  Company Number: BR-US-EMD SERONO, INC.-7084799

PATIENT
  Sex: Female

DRUGS (4)
  1. REBIF [Suspect]
     Indication: RELAPSING-REMITTING MULTIPLE SCLEROSIS
     Route: 058
     Dates: start: 20020827
  2. LITHIUM [Concomitant]
  3. LEXOTAN [Concomitant]
  4. FOLIC ACID [Concomitant]

REACTIONS (10)
  - BIPOLAR DISORDER [None]
  - ANAEMIA [None]
  - SUPRAVENTRICULAR TACHYCARDIA [None]
  - MEMORY IMPAIRMENT [None]
  - CARDIOMYOPATHY [None]
  - ARRHYTHMIA [None]
  - DEPRESSION [None]
  - INSOMNIA [None]
  - ABDOMINAL DISTENSION [None]
  - SUICIDAL IDEATION [None]
